FAERS Safety Report 9875795 (Version 1)
Quarter: 2014Q1

REPORT INFORMATION
  Report Type: Spontaneous
  Country: US (occurrence: None)
  Receive Date: 20140205
  Receipt Date: 20140205
  Transmission Date: 20141002
  Serious: Yes (Hospitalization)
  Sender: FDA-Public Use
  Company Number: None

PATIENT
  Age: 74 Year
  Sex: Male
  Weight: 78.93 kg

DRUGS (1)
  1. LISINOPRIL 10MG [Suspect]
     Route: 048

REACTIONS (1)
  - Hypotension [None]
